FAERS Safety Report 6297443-0 (Version None)
Quarter: 2009Q3

REPORT INFORMATION
  Report Type: 
  Country: None (occurrence: None)
  Receive Date: 20090805
  Receipt Date: 20090609
  Transmission Date: 20100115
  Serious: No
  Sender: FDA-Public Use
  Company Number: US-BAYER-200924055NA

PATIENT
  Age: 50 Year
  Sex: Male
  Weight: 88 kg

DRUGS (3)
  1. ULTRAVIST (PHARMACY BULK) [Suspect]
     Indication: COMPUTERISED TOMOGRAM ABDOMEN
     Dosage: TOTAL DAILY DOSE: 100 ML
     Route: 042
     Dates: start: 20090609, end: 20090609
  2. MT-10 PANCREATIC ENZYMES [Concomitant]
     Dosage: M-T 10
  3. VOLUMEN [Concomitant]
     Route: 048

REACTIONS (2)
  - PRURITUS [None]
  - URTICARIA [None]
